FAERS Safety Report 8367667-7 (Version None)
Quarter: 2012Q2

REPORT INFORMATION
  Report Type: 
  Country: None (occurrence: None)
  Receive Date: 20120517
  Receipt Date: 20090710
  Transmission Date: 20120825
  Serious: Yes (Other)
  Sender: FDA-Public Use
  Company Number: PHHY2009CH28402

PATIENT
  Sex: Male

DRUGS (4)
  1. SINTROM [Suspect]
     Indication: PROSTATE CANCER METASTATIC
     Route: 048
  2. ZOMETA [Suspect]
     Indication: PROSTATE CANCER METASTATIC
     Dosage: 4 MG, QMO
     Route: 042
     Dates: start: 20040101
  3. DEXAMETHASONE [Suspect]
     Indication: PROSTATE CANCER METASTATIC
     Dosage: UNK UKN, UNK
     Route: 048
  4. ZOLADEX [Concomitant]
     Indication: PROSTATE CANCER
     Route: 058

REACTIONS (2)
  - EXPOSED BONE IN JAW [None]
  - OSTEONECROSIS OF JAW [None]
